FAERS Safety Report 7626455-7 (Version None)
Quarter: 2011Q3

REPORT INFORMATION
  Report Type: 
  Country: None (occurrence: None)
  Receive Date: 20110721
  Receipt Date: 20110718
  Transmission Date: 20111222
  Serious: Yes (Other)
  Sender: FDA-Public Use
  Company Number: CL-PFIZER INC-2011163247

PATIENT
  Age: 67 Year
  Sex: Female

DRUGS (2)
  1. LIPITOR [Concomitant]
     Dosage: UNK
  2. NORVASC [Suspect]
     Indication: HYPERTENSION
     Dosage: 5 MG, UNK

REACTIONS (5)
  - NEUTROPENIA [None]
  - CONJUNCTIVITIS [None]
  - HEADACHE [None]
  - HEPATIC NEOPLASM [None]
  - ALOPECIA [None]
